FAERS Safety Report 20176311 (Version 1)
Quarter: 2021Q4

REPORT INFORMATION
  Report Type: Spontaneous
  Country: US (occurrence: None)
  Receive Date: 20211210
  Receipt Date: 20211210
  Transmission Date: 20220303
  Serious: No
  Sender: FDA-Public Use
  Company Number: None

PATIENT
  Age: 70 Year
  Sex: Male
  Weight: 82.8 kg

DRUGS (1)
  1. MAVYRET [Suspect]
     Active Substance: GLECAPREVIR\PIBRENTASVIR
     Indication: Hepatitis C
     Dosage: OTHER QUANTITY : 3 TABLET(S);?FREQUENCY : DAILY;?
     Route: 048
     Dates: start: 20201019, end: 20201228

REACTIONS (6)
  - Thyroid mass [None]
  - Schwannoma [None]
  - Asthenia [None]
  - Neck pain [None]
  - Fatigue [None]
  - Balance disorder [None]

NARRATIVE: CASE EVENT DATE: 20201019
